FAERS Safety Report 23561454 (Version 1)
Quarter: 2024Q1

REPORT INFORMATION
  Report Type: Spontaneous
  Country: US (occurrence: US)
  Receive Date: 20240224
  Receipt Date: 20240224
  Transmission Date: 20240410
  Serious: No
  Sender: FDA-Public Use
  Company Number: US-JNJFOC-20240209726

PATIENT
  Age: 3 Year
  Sex: Male

DRUGS (3)
  1. TYLENOL [Suspect]
     Active Substance: ACETAMINOPHEN
     Indication: Pyrexia
     Route: 065
  2. TYLENOL [Suspect]
     Active Substance: ACETAMINOPHEN
     Indication: Cough
  3. TYLENOL [Suspect]
     Active Substance: ACETAMINOPHEN
     Indication: Rhinorrhoea

REACTIONS (4)
  - Pain [Unknown]
  - Mobility decreased [Unknown]
  - Vomiting [Unknown]
  - Product use in unapproved indication [Unknown]
